FAERS Safety Report 5927404-X (Version None)
Quarter: 2008Q4

REPORT INFORMATION
  Report Type: 
  Country: None (occurrence: None)
  Receive Date: 20081022
  Receipt Date: 20081022
  Transmission Date: 20090506
  Serious: Yes (Life-Threatening, Disabling, Other)
  Sender: FDA-Public Use
  Company Number: None

PATIENT
  Age: 68 Year
  Sex: Female
  Weight: 75.7507 kg

DRUGS (1)
  1. ABILIFY [Suspect]
     Indication: BIPOLAR II DISORDER
     Dosage: 15 \ 20 MG 1 A DAY
     Dates: start: 20080912, end: 20081001

REACTIONS (16)
  - ARTHRALGIA [None]
  - BACK PAIN [None]
  - BEDRIDDEN [None]
  - COUGH [None]
  - DIZZINESS [None]
  - DIZZINESS POSTURAL [None]
  - DRY MOUTH [None]
  - FEELING ABNORMAL [None]
  - HEADACHE [None]
  - MUSCLE SPASMS [None]
  - OVERDOSE [None]
  - PAIN [None]
  - SENSATION OF HEAVINESS [None]
  - SINUS DISORDER [None]
  - TREMOR [None]
  - VISION BLURRED [None]
